FAERS Safety Report 24130799 (Version 4)
Quarter: 2024Q3

REPORT INFORMATION
  Report Type: Report from Study
  Country: DE (occurrence: DE)
  Receive Date: 20240724
  Receipt Date: 20240909
  Transmission Date: 20241017
  Serious: Yes (Hospitalization)
  Sender: ROCHE
  Company Number: DE-ML42393-1010-015-1_0

PATIENT
  Age: 44 Year
  Sex: Female

DRUGS (22)
  1. OCRELIZUMAB [Suspect]
     Active Substance: OCRELIZUMAB
     Indication: Relapsing multiple sclerosis
     Dosage: DOSE FREQUENCY: ONCE
     Route: 042
     Dates: start: 20230621
  2. OCRELIZUMAB [Suspect]
     Active Substance: OCRELIZUMAB
     Dosage: DOSE FREQUENCY: ONCE
     Route: 042
     Dates: start: 20240111
  3. Ortoton [Concomitant]
     Indication: Muscle relaxant therapy
     Route: 048
     Dates: start: 20240503, end: 20240503
  4. Vitamin B12 Ankermann [Concomitant]
     Indication: Prophylaxis
     Dosage: DOSE: 1000?DOSE FREQUENCY: QD (EVERY DAY)
     Route: 048
     Dates: start: 202203
  5. ACETAMINOPHEN [Concomitant]
     Active Substance: ACETAMINOPHEN
     Dosage: DOSE: 500?DOSE FREQUENCY: PRN (AS NEEDED)
     Route: 048
     Dates: start: 2019
  6. POTASSIUM IODIDE [Concomitant]
     Active Substance: POTASSIUM IODIDE
     Dosage: DOSE: 200?DOSE FREQUENCY: QD (EVERY DAY)
     Route: 048
     Dates: start: 2010
  7. MAGNESIUM [Concomitant]
     Active Substance: MAGNESIUM
     Indication: Prophylaxis
     Dosage: DOSE: 400?DOSE FREQUENCY: PRN (AS NEEDED)
     Route: 048
     Dates: start: 2018
  8. METHYLPREDNISOLONE [Concomitant]
     Active Substance: METHYLPREDNISOLONE
     Dosage: DOSE: 1?DOSE FREQUENCY: QD (EVERY DAY)
     Route: 042
     Dates: start: 20230503, end: 20230504
  9. TYSABRI [Concomitant]
     Active Substance: NATALIZUMAB
     Dosage: DOSE: 300?DOSE FREQUENCY: QM (EVERY MONTH)
     Route: 042
     Dates: start: 20230509, end: 20230509
  10. PIPERACILLIN SODIUM\TAZOBACTAM SODIUM [Concomitant]
     Active Substance: PIPERACILLIN SODIUM\TAZOBACTAM SODIUM
     Dosage: DOSE: 4/0.5?DOSE FREQUENCY: TID (3 TIMES A DAY)
     Route: 042
     Dates: start: 20240504, end: 20240510
  11. ACETYLCYSTEINE [Concomitant]
     Active Substance: ACETYLCYSTEINE
     Dosage: DOSE: 600?DOSE FREQUENCY: PRN (AS NEEDED)
     Route: 048
     Dates: start: 20240504, end: 202405
  12. ALBUTEROL [Concomitant]
     Active Substance: ALBUTEROL
     Dosage: DOSE: UNK?DOSE FREQUENCY: PRN (AS NEEDED)
     Route: 055
     Dates: start: 20240504, end: 20240510
  13. ATROVENT [Concomitant]
     Active Substance: IPRATROPIUM BROMIDE
     Dosage: DOSE: UNK?DOSE FREQUENCY: PRN (AS NEEDED)
     Route: 055
     Dates: start: 20240504, end: 20240510
  14. PREDNISOLUT L [Concomitant]
     Dosage: DOSE FREQUENCY: ONCE
     Route: 042
     Dates: start: 20230621, end: 20230621
  15. PREDNISOLUT L [Concomitant]
     Dosage: DOSE FREQUENCY: ONCE
     Route: 042
     Dates: start: 20230705, end: 20230705
  16. PREDNISOLUT L [Concomitant]
     Dosage: DOSE FREQUENCY: ONCE
     Route: 042
     Dates: start: 20240111, end: 20240111
  17. PREDNISOLUT L [Concomitant]
     Dosage: DOSE FREQUENCY: ONCE
     Route: 042
     Dates: start: 20240711, end: 20240711
  18. DIMETHINDENE MALEATE [Concomitant]
     Active Substance: DIMETHINDENE MALEATE
     Dosage: DOSE FREQUENCY: ONCE
     Route: 042
     Dates: start: 20230621, end: 20230621
  19. DIMETHINDENE MALEATE [Concomitant]
     Active Substance: DIMETHINDENE MALEATE
     Dosage: DOSE FREQUENCY: ONCE
     Route: 042
     Dates: start: 20230705, end: 20230705
  20. DIMETHINDENE MALEATE [Concomitant]
     Active Substance: DIMETHINDENE MALEATE
     Dosage: DOSE FREQUENCY: ONCE
     Route: 042
     Dates: start: 20240111, end: 20240111
  21. DIMETHINDENE MALEATE [Concomitant]
     Active Substance: DIMETHINDENE MALEATE
     Dosage: DOSE FREQUENCY: ONCE
     Route: 042
     Dates: start: 20240711, end: 20240711
  22. MOVICOL READY TO TAKE [Concomitant]
     Route: 048
     Dates: start: 2019

REACTIONS (3)
  - Pyrexia [Recovered/Resolved]
  - Respiratory tract infection [Recovered/Resolved]
  - Musculoskeletal chest pain [Recovered/Resolved]

NARRATIVE: CASE EVENT DATE: 20240502
